FAERS Safety Report 4981353-2 (Version None)
Quarter: 2006Q2

REPORT INFORMATION
  Report Type: 
  Country: None (occurrence: None)
  Receive Date: 20060424
  Receipt Date: 20050601
  Transmission Date: 20061013
  Serious: Yes (Disabling)
  Sender: FDA-Public Use
  Company Number: US-MERCK-0506USA00731

PATIENT
  Age: 49 Year
  Sex: Male
  Weight: 102 kg

DRUGS (2)
  1. VIOXX [Suspect]
     Indication: BACK PAIN
     Route: 048
     Dates: start: 19990101, end: 20040101
  2. ALEVE [Concomitant]
     Route: 065

REACTIONS (5)
  - AORTIC ARTERIOSCLEROSIS [None]
  - AORTIC DILATATION [None]
  - CARDIOMEGALY [None]
  - DEPRESSION [None]
  - MYOCARDIAL INFARCTION [None]
